FAERS Safety Report 6122566-6 (Version None)
Quarter: 2009Q1

REPORT INFORMATION
  Report Type: 
  Country: None (occurrence: None)
  Receive Date: 20090316
  Receipt Date: 20090316
  Transmission Date: 20090719
  Serious: Yes (Death)
  Sender: FDA-Public Use
  Company Number: None

PATIENT
  Age: 78 Year
  Sex: Female
  Weight: 59.8748 kg

DRUGS (2)
  1. OXALIPLATIN [Suspect]
     Indication: COLON CANCER
     Dosage: 168MG Q21D IV DRIP
     Route: 041
     Dates: start: 20070625, end: 20090312
  2. OXALIPLATIN [Suspect]

REACTIONS (1)
  - CHEST PAIN [None]
